FAERS Safety Report 16611797 (Version 2)
Quarter: 2019Q3

REPORT INFORMATION
  Report Type: Spontaneous
  Country: US (occurrence: US)
  Receive Date: 20190722
  Receipt Date: 20190723
  Transmission Date: 20191004
  Serious: No
  Sender: FDA-Public Use
  Company Number: US-ALLERGAN-1911129US

PATIENT
  Sex: Female

DRUGS (1)
  1. TRELSTAR [Suspect]
     Active Substance: TRIPTORELIN PAMOATE
     Indication: BREAST CANCER
     Dosage: UNK, SINGLE
     Route: 065

REACTIONS (1)
  - Off label use [Unknown]
